FAERS Safety Report 19192337 (Version 4)
Quarter: 2022Q1

REPORT INFORMATION
  Report Type: Spontaneous
  Country: RU (occurrence: RU)
  Receive Date: 20210428
  Receipt Date: 20220113
  Transmission Date: 20220423
  Serious: Yes (Life-Threatening, Hospitalization)
  Sender: FDA-Public Use
  Company Number: RU-CELGENE-RUS-20210405650

PATIENT
  Age: 33 Year
  Sex: Female
  Weight: 67 kg

DRUGS (16)
  1. AZACITIDINE [Suspect]
     Active Substance: AZACITIDINE
     Indication: Myelodysplastic syndrome
     Dosage: 75 MILLIGRAM/SQ. METER
     Route: 041
     Dates: start: 20210216
  2. VENETOCLAX [Suspect]
     Active Substance: VENETOCLAX
     Indication: Myelodysplastic syndrome
     Route: 048
  3. ALLOPURINOL [Concomitant]
     Active Substance: ALLOPURINOL
     Indication: Prophylaxis
     Route: 048
     Dates: start: 20210120, end: 20210308
  4. ALLOPURINOL [Concomitant]
     Active Substance: ALLOPURINOL
     Indication: Prophylaxis
     Dosage: 600 MILLIGRAM
     Route: 048
     Dates: start: 20210120
  5. FOLIC ACID [Concomitant]
     Active Substance: FOLIC ACID
     Indication: Functional residual capacity decreased
     Dosage: 15 MILLIGRAM
     Route: 048
     Dates: start: 20191102
  6. FOLIC ACID [Concomitant]
     Active Substance: FOLIC ACID
     Indication: Folate deficiency
  7. OMEPRAZOLE [Concomitant]
     Active Substance: OMEPRAZOLE
     Indication: Peptic ulcer
     Dosage: 40 MILLIGRAM
     Route: 048
     Dates: start: 20210215
  8. LEVOTHYROXINE SODIUM [Concomitant]
     Active Substance: LEVOTHYROXINE SODIUM
     Indication: Autoimmune thyroiditis
     Dosage: 100 MICROGRAM
     Route: 048
     Dates: start: 20010615
  9. ACYCLOVIR [Concomitant]
     Active Substance: ACYCLOVIR
     Indication: Herpes virus infection
     Dosage: 600 MILLIGRAM
     Route: 048
     Dates: start: 20210120
  10. SULFAMETHOXAZOLE AND TRIMETHOPRIM [Concomitant]
     Active Substance: SULFAMETHOXAZOLE\TRIMETHOPRIM
     Indication: Pneumocystis jirovecii pneumonia
     Dosage: 1920 MILLIGRAM
     Route: 048
     Dates: start: 20210120
  11. ETHINYL ESTRADIOL\LEVONORGESTREL [Concomitant]
     Active Substance: ETHINYL ESTRADIOL\LEVONORGESTREL
     Indication: Hormonal contraception
     Dosage: 1 TABLET
     Route: 048
     Dates: start: 20201201
  12. SODIUM CHLORIDE [Concomitant]
     Active Substance: SODIUM CHLORIDE
     Indication: Prophylaxis
     Route: 041
     Dates: start: 20210215, end: 20210222
  13. DEXTROSE [Concomitant]
     Active Substance: DEXTROSE
     Indication: Prophylaxis
     Dosage: 5% DEXTROSE IN WATER
     Route: 041
     Dates: start: 20210215, end: 20210222
  14. BENZOCAINE [Concomitant]
     Active Substance: BENZOCAINE
     Indication: Haemorrhoids
     Dosage: 1 DOSAGE FORMS
     Route: 054
     Dates: start: 20210415, end: 20210420
  15. ONDANSETRON [Concomitant]
     Active Substance: ONDANSETRON
     Indication: Antiemetic supportive care
     Dosage: 8 MILLIGRAM
     Route: 041
     Dates: start: 20210426, end: 20210502
  16. DEXTROSE [Concomitant]
     Active Substance: DEXTROSE
     Indication: Prophylaxis
     Dosage: 1000 MILLILITER
     Route: 041
     Dates: start: 20210215, end: 20210222

REACTIONS (2)
  - Ventricular tachycardia [Recovered/Resolved]
  - Lymphadenitis [Recovered/Resolved]

NARRATIVE: CASE EVENT DATE: 20210413
